FAERS Safety Report 9248684 (Version 4)
Quarter: 2014Q4

REPORT INFORMATION
  Report Type: Report from Study
  Country: DE (occurrence: DE)
  Receive Date: 20130423
  Receipt Date: 20141105
  Transmission Date: 20150529
  Serious: Yes (Hospitalization)
  Sender: FDA-Public Use
  Company Number: DE-ROCHE-1215547

PATIENT
  Age: 76 Year
  Sex: Male
  Weight: 92 kg

DRUGS (5)
  1. XARELTO [Suspect]
     Active Substance: RIVAROXABAN
     Indication: HYPERTENSION
     Route: 065
     Dates: start: 201304
  2. INTERFERON ALFA-2A [Suspect]
     Active Substance: INTERFERON ALFA-2A
     Indication: METASTATIC RENAL CELL CARCINOMA
     Route: 058
     Dates: start: 20120522, end: 20130911
  3. INTERFERON ALFA-2A [Suspect]
     Active Substance: INTERFERON ALFA-2A
     Route: 058
     Dates: start: 20131002
  4. XARELTO [Suspect]
     Active Substance: RIVAROXABAN
     Indication: CARDIAC FAILURE
  5. BEVACIZUMAB [Suspect]
     Active Substance: BEVACIZUMAB
     Indication: RENAL CELL CARCINOMA
     Dosage: LAST DOSE PRIOR TO SAE 10/APR/2013
     Route: 042
     Dates: start: 20120522, end: 20130410

REACTIONS (7)
  - Haemoglobin decreased [Recovered/Resolved]
  - Congestive cardiomyopathy [Recovering/Resolving]
  - Epistaxis [Recovered/Resolved]
  - Thrombocytopenia [Recovering/Resolving]
  - Atrial fibrillation [Recovering/Resolving]
  - Hypertension [Recovered/Resolved]
  - White blood cell count decreased [Not Recovered/Not Resolved]

NARRATIVE: CASE EVENT DATE: 20130416
